FAERS Safety Report 8941625 (Version 2)
Quarter: 2012Q4

REPORT INFORMATION
  Report Type: 
  Country: CO (occurrence: CO)
  Receive Date: 20121203
  Receipt Date: 20121214
  Transmission Date: 20130627
  Serious: Yes (Other)
  Sender: FDA-Public Use
  Company Number: CO-PFIZER INC-2012301814

PATIENT
  Age: 69 Year
  Sex: Female

DRUGS (3)
  1. LIPITOR [Suspect]
     Indication: HIGH CHOLESTEROL
     Dosage: 80 mg, once daily
     Route: 048
     Dates: start: 2004
  2. LIPITOR [Suspect]
     Indication: TRIGLYCERIDES HIGH
  3. ASPIRINETAS [Concomitant]
     Dosage: 100 mg, once daily
     Route: 048
     Dates: start: 1992

REACTIONS (7)
  - Osteoarthritis [Recovered/Resolved]
  - Eye disorder [Unknown]
  - Lymphangitis [Unknown]
  - Intervertebral disc disorder [Unknown]
  - Spondylolisthesis [Unknown]
  - Benign muscle neoplasm [Unknown]
  - Gait disturbance [Not Recovered/Not Resolved]
